FAERS Safety Report 9714914 (Version 1)
Quarter: 2013Q4

REPORT INFORMATION
  Report Type: Spontaneous
  Country: ES (occurrence: None)
  Receive Date: 20131125
  Receipt Date: 20131125
  Transmission Date: 20140711
  Serious: Yes (Hospitalization)
  Sender: FDA-Public Use
  Company Number: SYM-2013-12959

PATIENT
  Age: 78 Year
  Sex: Male

DRUGS (3)
  1. ELONTRIL [Suspect]
     Indication: MAJOR DEPRESSION
     Route: 048
     Dates: start: 201301, end: 201301
  2. ABILIFY (ARIPIRAZOLE) [Suspect]
     Indication: MAJOR DEPRESSION
     Route: 048
     Dates: start: 201301, end: 20130131
  3. ANAFRANIL (CLOMIPRAMINE HYDROCHLORIDE) (CLOMIPRAMINE HYDROCHLORIDE) [Concomitant]

REACTIONS (4)
  - Parkinsonism [None]
  - Drug interaction [None]
  - Fall [None]
  - Gait disturbance [None]
